FAERS Safety Report 9527543 (Version 1)
Quarter: 2013Q3

REPORT INFORMATION
  Report Type: Spontaneous
  Country: US (occurrence: US)
  Receive Date: 20130917
  Receipt Date: 20130917
  Transmission Date: 20140515
  Serious: Yes (Death)
  Sender: FDA-Public Use
  Company Number: US-AMGEN-USASP2013064675

PATIENT
  Age: 64 Year
  Sex: Female

DRUGS (12)
  1. ENBREL [Suspect]
     Indication: RHEUMATOID ARTHRITIS
     Dosage: 50 MG, QWK
     Route: 058
     Dates: start: 20070914
  2. CALCIUM [Concomitant]
     Dosage: UNK
  3. CRANBERRY                          /01512301/ [Concomitant]
     Dosage: UNK
  4. FISH OIL [Concomitant]
     Dosage: UNK
  5. KLONOPIN [Concomitant]
     Dosage: UNK
  6. MACROBID                           /00024401/ [Concomitant]
     Dosage: UNK
  7. MIRALAX                            /00754501/ [Concomitant]
     Dosage: UNK
  8. PAXIL                              /00500401/ [Concomitant]
     Dosage: UNK
  9. RISPERDAL [Concomitant]
     Dosage: UNK
  10. TRAMADOL [Concomitant]
     Dosage: UNK
  11. VESICARE [Concomitant]
     Dosage: UNK
  12. WARFARIN [Concomitant]
     Dosage: UNK

REACTIONS (1)
  - Death [Fatal]
